FAERS Safety Report 9367342 (Version 1)
Quarter: 2013Q2

REPORT INFORMATION
  Report Type: Spontaneous
  Country: FR (occurrence: FR)
  Receive Date: 20130625
  Receipt Date: 20130625
  Transmission Date: 20140414
  Serious: Yes (Hospitalization)
  Sender: FDA-Public Use
  Company Number: FR-TEVA-415125ISR

PATIENT
  Age: 80 Year
  Sex: 0

DRUGS (1)
  1. FUROSEMIDE [Suspect]

REACTIONS (2)
  - Pulmonary oedema [Unknown]
  - Somnolence [Unknown]
